FAERS Safety Report 9732175 (Version 4)
Quarter: 2015Q4

REPORT INFORMATION
  Report Type: Report from Study
  Country: US (occurrence: US)
  Receive Date: 20131205
  Receipt Date: 20151022
  Transmission Date: 20160305
  Serious: Yes (Other)
  Sender: FDA-Public Use
  Company Number: US-ROCHE-1308981

PATIENT
  Age: 77 Year
  Sex: Male

DRUGS (3)
  1. LUCENTIS [Suspect]
     Active Substance: RANIBIZUMAB
     Indication: RETINAL VEIN OCCLUSION
  2. LUCENTIS [Suspect]
     Active Substance: RANIBIZUMAB
     Indication: RETINAL HAEMORRHAGE
     Route: 050
     Dates: start: 201309
  3. LUCENTIS [Suspect]
     Active Substance: RANIBIZUMAB
     Indication: RETINAL OEDEMA

REACTIONS (5)
  - Intraocular pressure increased [Unknown]
  - Cerebrovascular accident [Unknown]
  - Nasopharyngitis [Not Recovered/Not Resolved]
  - Eye pain [Unknown]
  - Hypertension [Unknown]

NARRATIVE: CASE EVENT DATE: 201309
